FAERS Safety Report 14620719 (Version 2)
Quarter: 2018Q1

REPORT INFORMATION
  Report Type: Spontaneous
  Country: KR (occurrence: KR)
  Receive Date: 20180309
  Receipt Date: 20180321
  Transmission Date: 20180509
  Serious: Yes (Other)
  Sender: FDA-Public Use
  Company Number: KR-009507513-1802KOR013824

PATIENT
  Sex: Female

DRUGS (1)
  1. IMPLANON [Suspect]
     Active Substance: ETONOGESTREL
     Dosage: 1 DF
     Route: 059
     Dates: start: 20161202

REACTIONS (2)
  - Breast cancer [Not Recovered/Not Resolved]
  - Complication associated with device [Recovered/Resolved]
